FAERS Safety Report 21305261 (Version 1)
Quarter: 2022Q3

REPORT INFORMATION
  Report Type: Spontaneous
  Country: US (occurrence: None)
  Receive Date: 20220907
  Receipt Date: 20220907
  Transmission Date: 20221026
  Serious: Yes (Hospitalization)
  Sender: FDA-Public Use
  Company Number: None

PATIENT
  Age: 56 Year
  Sex: Male

DRUGS (1)
  1. HUMIRA [Suspect]
     Active Substance: ADALIMUMAB
     Route: 058
     Dates: start: 202110

REACTIONS (6)
  - Pharyngitis [None]
  - Illness [None]
  - Therapy interrupted [None]
  - Asthma [None]
  - Blood cholesterol abnormal [None]
  - Treatment noncompliance [None]

NARRATIVE: CASE EVENT DATE: 20220325
